FAERS Safety Report 24663757 (Version 4)
Quarter: 2025Q1

REPORT INFORMATION
  Report Type: Spontaneous
  Country: US (occurrence: US)
  Receive Date: 20241126
  Receipt Date: 20250113
  Transmission Date: 20250408
  Serious: Yes (Hospitalization)
  Sender: BRISTOL-MYERS SQUIBB COMPANY
  Company Number: US-BRISTOL-MYERS SQUIBB COMPANY-2024-184261

PATIENT
  Age: 87 Year
  Sex: Male
  Weight: 88.5 kg

DRUGS (5)
  1. ELIQUIS [Suspect]
     Active Substance: APIXABAN
     Indication: Atrial fibrillation
     Dosage: TAKE 1 TABLET (2.5 MG) BY MOUTH IN THE MORNING AND AT BEDTIME. HOLD FOR 6 DAYS, CAN RESUME TAKING IF
     Route: 048
     Dates: start: 20240109, end: 20240313
  2. ELIQUIS [Suspect]
     Active Substance: APIXABAN
     Indication: Cerebrovascular accident prophylaxis
     Dosage: TAKE 1 TABLET (2.5 MG) BY MOUTH 1 (ONE) TIME EACH DAY. HOLD FOR 6 DAYS, CAN RESUME TAKING IF NO FURT
     Route: 048
  3. ELIQUIS [Suspect]
     Active Substance: APIXABAN
     Route: 048
  4. VYNDAMAX [Suspect]
     Active Substance: TAFAMIDIS
     Indication: Cardiac amyloidosis
     Dosage: TAKE 61 MG BY MOUTH IN THE MORNING.
     Route: 048
     Dates: start: 20230321, end: 20240326
  5. VYNDAMAX [Suspect]
     Active Substance: TAFAMIDIS
     Indication: Cardiomyopathy
     Dosage: DISPENSE QUANTITY: 30 CAPSULE, THERAPY ENDED AFTER 30 DOSES
     Route: 048
     Dates: start: 20240506, end: 20240605

REACTIONS (8)
  - Pain in extremity [Unknown]
  - Arthralgia [Unknown]
  - Brain natriuretic peptide increased [Unknown]
  - Somnolence [Unknown]
  - Dyspnoea [Unknown]
  - Oedema peripheral [Unknown]
  - Fall [Unknown]
  - Pleural effusion [Unknown]

NARRATIVE: CASE EVENT DATE: 20240101
